FAERS Safety Report 15669506 (Version 1)
Quarter: 2018Q4

REPORT INFORMATION
  Report Type: Spontaneous
  Country: SG (occurrence: SG)
  Receive Date: 20181129
  Receipt Date: 20181129
  Transmission Date: 20190205
  Serious: Yes (Hospitalization, Other)
  Sender: FDA-Public Use
  Company Number: SG-PCCINC-2018-PEL-003621

PATIENT

DRUGS (9)
  1. MIDAZOLAM [Concomitant]
     Active Substance: MIDAZOLAM HYDROCHLORIDE
     Indication: INDUCTION OF ANAESTHESIA
     Dosage: 1.5 UNK
     Route: 042
  2. DEXAMETHASONE. [Concomitant]
     Active Substance: DEXAMETHASONE
     Indication: SWELLING
     Dosage: 8 MILLIGRAM
     Route: 042
  3. ONDANSETRON [Concomitant]
     Active Substance: ONDANSETRON
     Indication: ANTIEMETIC SUPPORTIVE CARE
     Dosage: 4 MILLIGRAM
     Route: 042
  4. PARACETAMOL [Concomitant]
     Active Substance: ACETAMINOPHEN
     Indication: PAIN
     Dosage: 1 GRAM
     Route: 042
  5. DEXAMETHASONE. [Concomitant]
     Active Substance: DEXAMETHASONE
     Indication: ANTIEMETIC SUPPORTIVE CARE
  6. FENTANYL. [Concomitant]
     Active Substance: FENTANYL
     Indication: PAIN
     Dosage: 50 MICROGRAM
     Route: 042
  7. SEVOFLURANE 100 ML [Suspect]
     Active Substance: SEVOFLURANE
     Indication: MAINTENANCE OF ANAESTHESIA
     Dosage: UNK
  8. FENTANYL. [Concomitant]
     Active Substance: FENTANYL
     Indication: INDUCTION OF ANAESTHESIA
     Dosage: 75 MICROGRAM
     Route: 042
  9. PROPOFOL. [Concomitant]
     Active Substance: PROPOFOL
     Indication: INDUCTION OF ANAESTHESIA
     Dosage: 200 MILLIGRAM
     Route: 042

REACTIONS (2)
  - Dissociative disorder [Recovered/Resolved]
  - Loss of consciousness [Recovered/Resolved]
